FAERS Safety Report 13191821 (Version 1)
Quarter: 2017Q1

REPORT INFORMATION
  Report Type: Spontaneous
  Country: US (occurrence: US)
  Receive Date: 20170207
  Receipt Date: 20170207
  Transmission Date: 20170428
  Serious: No
  Sender: FDA-Public Use
  Company Number: US-BIOTEST-T 316/16

PATIENT
  Sex: Male

DRUGS (1)
  1. BIVIGAM [Suspect]
     Active Substance: HUMAN IMMUNOGLOBULIN G
     Indication: PRODUCT USED FOR UNKNOWN INDICATION
     Dosage: EVERY 3 WEEKS
     Route: 041

REACTIONS (1)
  - Drug screen false positive [Unknown]

NARRATIVE: CASE EVENT DATE: 201605
